FAERS Safety Report 25538106 (Version 1)
Quarter: 2025Q3

REPORT INFORMATION
  Report Type: Spontaneous
  Country: JP (occurrence: JP)
  Receive Date: 20250710
  Receipt Date: 20250710
  Transmission Date: 20251020
  Serious: Yes (Hospitalization, Other)
  Sender: Unknown Manufacturer
  Company Number: JP-CORZA MEDICAL GMBH-2025-JP-002304

PATIENT

DRUGS (3)
  1. TACHOSIL [Suspect]
     Active Substance: FIBRINOGEN HUMAN\HUMAN THROMBIN
     Indication: Pulmonary air leakage
     Route: 065
  2. BERIPLAST P COMBI [Suspect]
     Active Substance: APROTININ\CALCIUM CHLORIDE\FACTOR XIII CONCENTRATE (HUMAN)\FIBRINOGEN HUMAN\THROMBIN
     Indication: Pulmonary air leakage
     Route: 065
  3. THROMBIN [Suspect]
     Active Substance: THROMBIN
     Indication: Pulmonary air leakage
     Route: 065

REACTIONS (1)
  - Drug ineffective [Unknown]
